FAERS Safety Report 11931817 (Version 2)
Quarter: 2016Q2

REPORT INFORMATION
  Report Type: Spontaneous
  Country: US (occurrence: US)
  Receive Date: 20160120
  Receipt Date: 20160412
  Transmission Date: 20160815
  Serious: Yes (Other)
  Sender: FDA-Public Use
  Company Number: US-INCYTE CORPORATION-2015IN005523

PATIENT
  Age: 71 Year
  Sex: Male
  Weight: 107.3 kg

DRUGS (11)
  1. ATORVASTATIN [Concomitant]
     Active Substance: ATORVASTATIN
  2. JAKAFI [Suspect]
     Active Substance: RUXOLITINIB
     Indication: MYELOFIBROSIS
     Dosage: 5 MG, BID
     Dates: start: 20150917
  3. ATENOLOL. [Concomitant]
     Active Substance: ATENOLOL
  4. MULTIVITAMIN                       /00097801/ [Concomitant]
     Active Substance: VITAMINS
  5. TYLENOL [Concomitant]
     Active Substance: ACETAMINOPHEN
     Dosage: PRN
  6. LISINOPRIL. [Concomitant]
     Active Substance: LISINOPRIL
  7. NITRO                              /00003201/ [Concomitant]
     Dosage: PRN
     Route: 060
  8. JAKAFI [Suspect]
     Active Substance: RUXOLITINIB
     Indication: MYELODYSPLASTIC SYNDROME
     Dosage: 5 MG, BID
     Route: 048
     Dates: start: 20150922
  9. FUROSEMIDE. [Concomitant]
     Active Substance: FUROSEMIDE
     Dosage: UNK, PRN
  10. ALLOPURINOL. [Concomitant]
     Active Substance: ALLOPURINOL
  11. K-TAB [Concomitant]
     Active Substance: POTASSIUM CHLORIDE
     Dosage: 10 MEQ, UNK

REACTIONS (6)
  - Fatigue [Recovering/Resolving]
  - Platelet count decreased [Recovering/Resolving]
  - Dyspnoea exertional [Recovered/Resolved]
  - Epistaxis [Recovering/Resolving]
  - Off label use [Unknown]
  - Bronchitis [Recovered/Resolved]

NARRATIVE: CASE EVENT DATE: 201511
